FAERS Safety Report 9215123 (Version 2)
Quarter: 2013Q2

REPORT INFORMATION
  Report Type: Spontaneous
  Country: KR (occurrence: KR)
  Receive Date: 20130405
  Receipt Date: 20130603
  Transmission Date: 20140414
  Serious: Yes (Hospitalization)
  Sender: FDA-Public Use
  Company Number: KR-ELI_LILLY_AND_COMPANY-KR201303009857

PATIENT
  Age: 44 Year
  Sex: Male

DRUGS (3)
  1. HUMALOG 50% LISPRO, 50% NPL [Suspect]
     Indication: TYPE 2 DIABETES MELLITUS
     Dosage: 16 U, EACH MORNING
     Route: 058
     Dates: start: 201104
  2. HUMALOG 50% LISPRO, 50% NPL [Suspect]
     Dosage: 16 U, QD
     Route: 058
     Dates: start: 201104
  3. HUMALOG 50% LISPRO, 50% NPL [Suspect]
     Dosage: 18 U, EACH EVENING
     Route: 058
     Dates: start: 201104

REACTIONS (2)
  - Lower limb fracture [Recovering/Resolving]
  - Road traffic accident [Recovered/Resolved]
